FAERS Safety Report 23860648 (Version 1)
Quarter: 2024Q2

REPORT INFORMATION
  Report Type: Report from Study
  Country: ZA (occurrence: ZA)
  Receive Date: 20240516
  Receipt Date: 20240516
  Transmission Date: 20240716
  Serious: Yes (Other)
  Sender: FDA-Public Use
  Company Number: ZA-CELLTRION INC.-2022ZA014450

PATIENT

DRUGS (2)
  1. INFLIXIMAB [Suspect]
     Active Substance: INFLIXIMAB
     Indication: Colitis ulcerative
     Dosage: 400 MG IV 4 HRS - STAT; THEN 2 WEEKS ; THEN 6 WEEKS
     Route: 042
  2. INFLIXIMAB [Suspect]
     Active Substance: INFLIXIMAB
     Dosage: 800 MG 8 WEEKLY INTERVAL
     Route: 042
     Dates: start: 20231103

REACTIONS (10)
  - Colitis [Unknown]
  - Frequent bowel movements [Recovering/Resolving]
  - Pulmonary function test abnormal [Unknown]
  - Weight increased [Recovered/Resolved]
  - Aphthous ulcer [Unknown]
  - Abdominal distension [Recovered/Resolved]
  - Dyspnoea [Recovering/Resolving]
  - Product availability issue [Unknown]
  - Treatment delayed [Unknown]
  - Overdose [Unknown]

NARRATIVE: CASE EVENT DATE: 20231103
